FAERS Safety Report 17425256 (Version 1)
Quarter: 2020Q1

REPORT INFORMATION
  Report Type: Spontaneous
  Country: CA (occurrence: CA)
  Receive Date: 20200218
  Receipt Date: 20200218
  Transmission Date: 20200409
  Serious: Yes (Other)
  Sender: FDA-Public Use
  Company Number: CA-AUROBINDO-AUR-APL-2019-028152

PATIENT
  Age: 23 Year
  Sex: Female

DRUGS (33)
  1. APO LAMOTRIGINE [Suspect]
     Active Substance: LAMOTRIGINE
     Indication: PETIT MAL EPILEPSY
  2. APO LAMOTRIGINE [Suspect]
     Active Substance: LAMOTRIGINE
     Indication: GENERALISED TONIC-CLONIC SEIZURE
  3. CARBAMAZEPINE. [Suspect]
     Active Substance: CARBAMAZEPINE
     Indication: GENERALISED TONIC-CLONIC SEIZURE
  4. ETHOSUXIMIDE. [Suspect]
     Active Substance: ETHOSUXIMIDE
     Indication: GENERALISED TONIC-CLONIC SEIZURE
  5. RUFINAMIDE [Suspect]
     Active Substance: RUFINAMIDE
     Indication: SEIZURE
     Dosage: UNK
     Route: 048
  6. LACOSAMIDE TABLETS [Suspect]
     Active Substance: LACOSAMIDE
     Indication: SEIZURE
     Dosage: UNK
     Route: 065
  7. LACOSAMIDE TABLETS [Suspect]
     Active Substance: LACOSAMIDE
     Indication: GENERALISED TONIC-CLONIC SEIZURE
  8. TOPIRAMATE. [Suspect]
     Active Substance: TOPIRAMATE
     Indication: SEIZURE
     Dosage: UNK
     Route: 065
  9. APO LEVETIRACETAM [Suspect]
     Active Substance: LEVETIRACETAM
     Indication: SEIZURE
     Dosage: UNK
     Route: 065
  10. CLOBAZAM. [Suspect]
     Active Substance: CLOBAZAM
     Indication: GENERALISED TONIC-CLONIC SEIZURE
     Dosage: UNK
     Route: 065
  11. VALPROIC ACID. [Suspect]
     Active Substance: VALPROIC ACID
     Indication: GENERALISED TONIC-CLONIC SEIZURE
     Dosage: UNK
     Route: 065
  12. ACETAZOLAMIDE. [Suspect]
     Active Substance: ACETAZOLAMIDE
     Indication: SEIZURE
  13. PHENOBARBITAL. [Suspect]
     Active Substance: PHENOBARBITAL
     Indication: GENERALISED TONIC-CLONIC SEIZURE
  14. LAMOTRIGINE TABLET [Suspect]
     Active Substance: LAMOTRIGINE
     Indication: SEIZURE
     Dosage: UNK
     Route: 065
  15. ACETAZOLAMIDE. [Suspect]
     Active Substance: ACETAZOLAMIDE
     Indication: GENERALISED TONIC-CLONIC SEIZURE
  16. APO LEVETIRACETAM [Suspect]
     Active Substance: LEVETIRACETAM
     Indication: GENERALISED TONIC-CLONIC SEIZURE
  17. ETHOSUXIMIDE. [Suspect]
     Active Substance: ETHOSUXIMIDE
     Indication: SEIZURE
     Dosage: UNK
     Route: 065
  18. RUFINAMIDE [Suspect]
     Active Substance: RUFINAMIDE
     Indication: GENERALISED TONIC-CLONIC SEIZURE
  19. APO LAMOTRIGINE [Suspect]
     Active Substance: LAMOTRIGINE
     Indication: SEIZURE
     Dosage: 150 MILLIGRAM, TWO TIMES A DAY
     Route: 065
  20. APO LEVETIRACETAM [Suspect]
     Active Substance: LEVETIRACETAM
     Indication: PETIT MAL EPILEPSY
  21. APO TOPIRAMATE [Suspect]
     Active Substance: TOPIRAMATE
     Indication: GENERALISED TONIC-CLONIC SEIZURE
  22. ETHOSUXIMIDE. [Suspect]
     Active Substance: ETHOSUXIMIDE
     Indication: PETIT MAL EPILEPSY
  23. PHENOBARBITAL. [Suspect]
     Active Substance: PHENOBARBITAL
     Indication: PETIT MAL EPILEPSY
  24. LACOSAMIDE TABLETS [Suspect]
     Active Substance: LACOSAMIDE
     Indication: PETIT MAL EPILEPSY
  25. ACETAZOLAMIDE. [Suspect]
     Active Substance: ACETAZOLAMIDE
     Indication: PETIT MAL EPILEPSY
     Dosage: UNK
     Route: 065
  26. APO TOPIRAMATE [Suspect]
     Active Substance: TOPIRAMATE
     Indication: SEIZURE
     Dosage: UNK
     Route: 065
  27. CARBAMAZEPINE. [Suspect]
     Active Substance: CARBAMAZEPINE
     Indication: PETIT MAL EPILEPSY
  28. PHENOBARBITAL. [Suspect]
     Active Substance: PHENOBARBITAL
     Indication: SEIZURE
     Dosage: UNK
     Route: 065
  29. RUFINAMIDE [Suspect]
     Active Substance: RUFINAMIDE
     Indication: PETIT MAL EPILEPSY
  30. LEVETIRACETAM TABLET [Suspect]
     Active Substance: LEVETIRACETAM
     Indication: SEIZURE
     Dosage: UNK
     Route: 065
  31. APO TOPIRAMATE [Suspect]
     Active Substance: TOPIRAMATE
     Indication: PETIT MAL EPILEPSY
  32. CARBAMAZEPINE. [Suspect]
     Active Substance: CARBAMAZEPINE
     Indication: SEIZURE
     Dosage: 400 MILLIGRAM, TWO TIMES A DAY
     Route: 065
  33. PHENYTOIN. [Suspect]
     Active Substance: PHENYTOIN
     Indication: GENERALISED TONIC-CLONIC SEIZURE
     Dosage: UNK
     Route: 065

REACTIONS (4)
  - Drug ineffective [Unknown]
  - Treatment failure [Unknown]
  - Off label use [Unknown]
  - Therapeutic product effect incomplete [Unknown]
